FAERS Safety Report 4456963-1 (Version None)
Quarter: 2004Q3

REPORT INFORMATION
  Report Type: 
  Country: None (occurrence: None)
  Receive Date: 20040921
  Receipt Date: 20040906
  Transmission Date: 20050211
  Serious: No
  Sender: FDA-Public Use
  Company Number: 2004GB02152

PATIENT
  Age: 27 Year
  Sex: Female
  Weight: 101 kg

DRUGS (2)
  1. LIDOCAINE [Suspect]
     Indication: EPIDURAL ANAESTHESIA
     Dosage: 1 MG/KG ONCE ED
     Route: 008
  2. EPHEDRINE SUL CAP [Suspect]
     Indication: PROPHYLAXIS
     Dosage: 30 MG IN 500 MLS SALINE + 6 MG BOLUS

REACTIONS (6)
  - ANAESTHETIC COMPLICATION [None]
  - BLOOD PRESSURE DECREASED [None]
  - DIZZINESS [None]
  - DRUG EXPOSURE DURING PREGNANCY [None]
  - POST PROCEDURAL COMPLICATION [None]
  - SUPRAVENTRICULAR TACHYCARDIA [None]
